FAERS Safety Report 6041709-6 (Version None)
Quarter: 2009Q1

REPORT INFORMATION
  Report Type: 
  Country: None (occurrence: None)
  Receive Date: 20090116
  Receipt Date: 20090107
  Transmission Date: 20090719
  Serious: Yes (Hospitalization)
  Sender: FDA-Public Use
  Company Number: AU-EISAI MEDIAL RESEARCH-E3810-02090-SPO-AU

PATIENT
  Sex: Male

DRUGS (4)
  1. RABEPRAZOLE SODIUM [Suspect]
     Indication: DYSPEPSIA
     Route: 048
  2. LIPITOR [Concomitant]
  3. ASPIRIN [Concomitant]
  4. LEXAPRO [Concomitant]

REACTIONS (1)
  - CORONARY ARTERY DISEASE [None]
